FAERS Safety Report 4819701-6 (Version None)
Quarter: 2005Q4

REPORT INFORMATION
  Report Type: 
  Country: None (occurrence: None)
  Receive Date: 20051102
  Receipt Date: 20051102
  Transmission Date: 20060501
  Serious: Yes (Life-Threatening)
  Sender: FDA-Public Use
  Company Number: None

PATIENT
  Age: 61 Year
  Sex: Female
  Weight: 118 kg

DRUGS (1)
  1. OXALIPLATIN (ELOXATIN) [Suspect]
     Indication: COLON CANCER
     Dosage: EVERY 3 WEEKS  100MG
     Dates: start: 20051006, end: 20051027

REACTIONS (3)
  - DYSPNOEA [None]
  - RASH [None]
  - TREMOR [None]
